FAERS Safety Report 7248229-1 (Version None)
Quarter: 2011Q1

REPORT INFORMATION
  Report Type: 
  Country: None (occurrence: None)
  Receive Date: 20110127
  Receipt Date: 20101115
  Transmission Date: 20110831
  Serious: Yes (Hospitalization, Other)
  Sender: FDA-Public Use
  Company Number: US-BAYER-201026677NA

PATIENT
  Sex: Female
  Weight: 101 kg

DRUGS (10)
  1. OCELLA [Suspect]
     Indication: PRODUCT USED FOR UNKNOWN INDICATION
     Route: 048
     Dates: start: 20081119, end: 20090218
  2. UNCODEABLE ^UNCLASSIFIABLE^ [Concomitant]
     Dosage: UNK
  3. ACCUTANE [Concomitant]
     Dosage: UNK
  4. PRILOSEC [Concomitant]
  5. YAZ [Suspect]
     Indication: POLYCYSTIC OVARIES
     Dosage: UNK UNK, UNK
     Route: 048
     Dates: start: 20090101, end: 20090801
  6. OMEPRAZOLE [Concomitant]
  7. GLUCOPHAGE [Concomitant]
  8. ALBUTEROL [Concomitant]
     Indication: ASTHMA
     Dosage: UNK
     Dates: start: 19960101
  9. DIFLUCAN [Concomitant]
  10. CLARITIN [Concomitant]
     Dosage: UNK
     Dates: start: 20000101

REACTIONS (4)
  - IRRITABLE BOWEL SYNDROME [None]
  - ABDOMINAL PAIN [None]
  - GALLBLADDER DISORDER [None]
  - WEIGHT INCREASED [None]
